FAERS Safety Report 10518532 (Version 3)
Quarter: 2014Q4

REPORT INFORMATION
  Report Type: Spontaneous
  Country: US (occurrence: US)
  Receive Date: 20141015
  Receipt Date: 20141201
  Transmission Date: 20150528
  Serious: Yes (Other)
  Sender: FDA-Public Use
  Company Number: US-PFIZER INC-2014281978

PATIENT
  Age: 75 Year
  Sex: Female

DRUGS (1)
  1. XELJANZ [Suspect]
     Active Substance: TOFACITINIB CITRATE
     Dosage: 5 MG, UNK

REACTIONS (9)
  - Infection [Unknown]
  - Influenza like illness [Unknown]
  - Vomiting [Unknown]
  - Rheumatoid arthritis [Unknown]
  - Heart rate increased [Unknown]
  - Asthma [Unknown]
  - Gastroenteritis [Unknown]
  - Condition aggravated [Unknown]
  - Joint swelling [Unknown]
